FAERS Safety Report 20720869 (Version 1)
Quarter: 2022Q2

REPORT INFORMATION
  Report Type: Spontaneous
  Country: US (occurrence: US)
  Receive Date: 20220418
  Receipt Date: 20220418
  Transmission Date: 20220721
  Serious: Yes (Hospitalization)
  Sender: FDA-Public Use
  Company Number: US-ALXN-A202204653

PATIENT
  Sex: Female
  Weight: 15.193 kg

DRUGS (4)
  1. KANUMA [Suspect]
     Active Substance: SEBELIPASE ALFA
     Indication: Lipids abnormal
     Dosage: 60 MG, QW
     Route: 042
     Dates: start: 20220329
  2. AMOXICILLIN [Concomitant]
     Active Substance: AMOXICILLIN
     Indication: Product used for unknown indication
     Dosage: UNK
     Route: 065
  3. CASEIN [Concomitant]
     Active Substance: CASEIN
     Indication: Product used for unknown indication
     Dosage: UNK
     Route: 065
  4. LIDOCAINE [Concomitant]
     Active Substance: LIDOCAINE
     Indication: Product used for unknown indication
     Dosage: UNK
     Route: 065

REACTIONS (1)
  - Hospitalisation [Unknown]
